FAERS Safety Report 15195931 (Version 5)
Quarter: 2019Q4

REPORT INFORMATION
  Report Type: Spontaneous
  Country: US (occurrence: US)
  Receive Date: 20180725
  Receipt Date: 20191023
  Transmission Date: 20200122
  Serious: No
  Sender: FDA-Public Use
  Company Number: US-PFIZER INC-2018298188

PATIENT
  Age: 39 Year
  Sex: Male

DRUGS (1)
  1. LYRICA [Suspect]
     Active Substance: PREGABALIN
     Dosage: 300 MG, 2X/DAY (1 IN THE MORNING, 1 IN THE AFTERNOON)

REACTIONS (3)
  - Pain [Unknown]
  - Mobility decreased [Unknown]
  - Frustration tolerance decreased [Unknown]
